FAERS Safety Report 7878448 (Version 4)
Quarter: 2014Q1

REPORT INFORMATION
  Report Type: Spontaneous
  Country: DK (occurrence: DK)
  Receive Date: 20110330
  Receipt Date: 20140221
  Transmission Date: 20141002
  Serious: Yes (Other)
  Sender: FDA-Public Use
  Company Number: DK-MYLANLABS-2011S1005530

PATIENT
  Age: 49 Year
  Sex: Male
  Weight: 85 kg

DRUGS (3)
  1. LAMOTRIGINE [Suspect]
     Indication: EPILEPSY
     Dosage: STYRKE: 100 MG
     Dates: start: 2005, end: 2010
  2. LAMICTAL [Suspect]
     Indication: EPILEPSY
  3. PLENDIL [Concomitant]
     Indication: HYPERTENSION
     Dates: start: 1994

REACTIONS (4)
  - Chronic obstructive pulmonary disease [Unknown]
  - Diarrhoea [Unknown]
  - Somnolence [Unknown]
  - Lethargy [Unknown]
